FAERS Safety Report 16094423 (Version 10)
Quarter: 2024Q4

REPORT INFORMATION
  Report Type: Spontaneous
  Country: US (occurrence: US)
  Receive Date: 20190320
  Receipt Date: 20241210
  Transmission Date: 20250114
  Serious: No
  Sender: PFIZER
  Company Number: US-PFIZER INC-2017397132

PATIENT
  Age: 65 Year
  Sex: Male

DRUGS (5)
  1. SOMAVERT [Suspect]
     Active Substance: PEGVISOMANT
     Indication: Acromegaly
     Dosage: 40 MG, 5 TIMES A WEEK
     Route: 058
     Dates: start: 20170508
  2. SOMAVERT [Suspect]
     Active Substance: PEGVISOMANT
     Dosage: 30 MG, 3 DAYS A WEEK
     Dates: start: 20170531
  3. SOMAVERT [Suspect]
     Active Substance: PEGVISOMANT
     Dosage: 30 MG, 4 TIMES A WEEK
  4. SOMAVERT [Suspect]
     Active Substance: PEGVISOMANT
     Dosage: 30 MG, EVERY OTHER DAY
  5. SOMAVERT [Suspect]
     Active Substance: PEGVISOMANT
     Dosage: 30 MG, 2X/WEEK
     Route: 058
     Dates: start: 20231026

REACTIONS (4)
  - Insulin-like growth factor increased [Unknown]
  - Off label use [Unknown]
  - Product dose omission issue [Unknown]
  - Device dispensing error [Unknown]

NARRATIVE: CASE EVENT DATE: 20170508
